FAERS Safety Report 5734956-1 (Version None)
Quarter: 2008Q2

REPORT INFORMATION
  Report Type: 
  Country: None (occurrence: None)
  Receive Date: 20080512
  Receipt Date: 20080506
  Transmission Date: 20081010
  Serious: Yes (Hospitalization)
  Sender: FDA-Public Use
  Company Number: FR-BRISTOL-MYERS SQUIBB COMPANY-14183305

PATIENT
  Age: 74 Year

DRUGS (6)
  1. CETUXIMAB [Suspect]
     Indication: COLON CANCER
     Dosage: 5 MG/ML,DRUG INTERRUPTED ON 11FEB08 AND RESTARTED ON 19FEB08(DOSE-400 MG/M2) 1 IN 1 WK
     Route: 042
     Dates: start: 20080204, end: 20080211
  2. OXALIPLATIN [Suspect]
     Indication: COLON CANCER
     Dosage: DRUG INTERRUPTED ON 11FEB08 AND RESTARTED ON 25FEB08(85 MG/M2)1 IN 2 WK
     Route: 042
     Dates: start: 20080204, end: 20080211
  3. FLUOROURACIL [Suspect]
     Indication: COLON CANCER
     Dosage: DRUG INTERRUPTED ON 11FEB08 AND RESTARTED ON 25FEB08(900 MG/M2)1 IN 2 WK
     Route: 042
     Dates: start: 20080204, end: 20080211
  4. FOLINIC ACID [Suspect]
     Indication: COLON CANCER
     Dosage: DRUG INTERRUPTED ON 11FEB08 AND RESTARTED ON 25FEB08(100 MG/M2)1 IN 2 WK
     Route: 042
     Dates: start: 20080204, end: 20080211
  5. CLOPIDOGREL BISULFATE [Concomitant]
     Indication: MYOCARDIAL ISCHAEMIA
  6. ENOXAPARIN SODIUM [Concomitant]
     Indication: MYOCARDIAL ISCHAEMIA

REACTIONS (1)
  - TRANSIENT ISCHAEMIC ATTACK [None]
